FAERS Safety Report 13639502 (Version 1)
Quarter: 2017Q2

REPORT INFORMATION
  Report Type: Spontaneous
  Country: US (occurrence: US)
  Receive Date: 20170609
  Receipt Date: 20170609
  Transmission Date: 20170830
  Serious: No
  Sender: FDA-Public Use
  Company Number: US-ROCHE-1352955

PATIENT
  Sex: Female
  Weight: 63.11 kg

DRUGS (1)
  1. KLONOPIN [Suspect]
     Active Substance: CLONAZEPAM
     Indication: STRESS
     Route: 065

REACTIONS (1)
  - Gastrointestinal hypomotility [Unknown]
